FAERS Safety Report 8185663-X (Version None)
Quarter: 2012Q1

REPORT INFORMATION
  Report Type: 
  Country: None (occurrence: None)
  Receive Date: 20120305
  Receipt Date: 20120301
  Transmission Date: 20120608
  Serious: Yes (Life-Threatening, Hospitalization)
  Sender: FDA-Public Use
  Company Number: PHHY2012PL016545

PATIENT
  Sex: Female
  Weight: 88 kg

DRUGS (1)
  1. OXALIPLATIN [Suspect]
     Indication: NEOPLASM MALIGNANT
     Dosage: 180 MG, UNK
     Route: 042

REACTIONS (3)
  - BRADYCARDIA [None]
  - SHOCK [None]
  - HYPOTENSION [None]
